FAERS Safety Report 6832579-4 (Version None)
Quarter: 2010Q3

REPORT INFORMATION
  Report Type: 
  Country: None (occurrence: None)
  Receive Date: 20100707
  Receipt Date: 20100623
  Transmission Date: 20110219
  Serious: Yes (Hospitalization)
  Sender: FDA-Public Use
  Company Number: 1000014865

PATIENT
  Age: 72 Year
  Sex: Male

DRUGS (9)
  1. NEBIVOLOL HCL [Suspect]
     Dosage: 2.5 MG (2.5 MG, 1 IN 1 D), ORAL
     Route: 048
     Dates: start: 20040101
  2. PRAVASTATIN SODIUM [Suspect]
     Dosage: 10 MG (10 MG, 1 IN  D), ORAL
     Route: 048
     Dates: start: 20040101
  3. KENZEN [Suspect]
     Dosage: 8 MG (8 MG, 1 IN 1 D), ORAL
     Route: 048
     Dates: start: 20040101
  4. ALLOPURINOL [Suspect]
     Dosage: ORAL
     Route: 048
  5. KARDEGIC [Concomitant]
  6. LASIX [Concomitant]
  7. PREVISCAN [Concomitant]
  8. AMLOR [Concomitant]
  9. NEXIUM [Concomitant]

REACTIONS (3)
  - INTERSTITIAL LUNG DISEASE [None]
  - PULMONARY FIBROSIS [None]
  - RESPIRATORY DISTRESS [None]
